FAERS Safety Report 23999228 (Version 1)
Quarter: 2024Q2

REPORT INFORMATION
  Report Type: Spontaneous
  Country: JP (occurrence: JP)
  Receive Date: 20240621
  Receipt Date: 20240621
  Transmission Date: 20240715
  Serious: Yes (Other)
  Sender: FDA-Public Use
  Company Number: JP-SUN PHARMACEUTICAL INDUSTRIES LTD-2024R1-451553

PATIENT
  Age: 3 Month
  Sex: Female

DRUGS (1)
  1. COTRIMOXAZOLE [Suspect]
     Active Substance: SULFAMETHOXAZOLE\TRIMETHOPRIM
     Indication: Pneumocystis jirovecii pneumonia
     Dosage: UNK
     Route: 042

REACTIONS (2)
  - Drug ineffective [Unknown]
  - Condition aggravated [Unknown]
